FAERS Safety Report 7213221-X (Version None)
Quarter: 2011Q1

REPORT INFORMATION
  Report Type: 
  Country: None (occurrence: None)
  Receive Date: 20110106
  Receipt Date: 20110105
  Transmission Date: 20110831
  Serious: Yes (Other)
  Sender: FDA-Public Use
  Company Number: NL-TEVA-261010ISR

PATIENT
  Age: 80 Year
  Sex: Female

DRUGS (2)
  1. MICONAZOLE [Suspect]
     Indication: FUNGAL INFECTION
     Dosage: 20MG/G
     Route: 054
  2. PHENPROCOUMON [Interacting]
     Indication: ATRIAL FIBRILLATION

REACTIONS (2)
  - DRUG INTERACTION [None]
  - COAGULATION TEST ABNORMAL [None]
